FAERS Safety Report 5289569-5 (Version None)
Quarter: 2007Q2

REPORT INFORMATION
  Report Type: 
  Country: None (occurrence: None)
  Receive Date: 20070406
  Receipt Date: 20070326
  Transmission Date: 20071010
  Serious: Yes (Other)
  Sender: FDA-Public Use
  Company Number: US-ROCHE-489593

PATIENT
  Age: 58 Year
  Sex: Female

DRUGS (1)
  1. PEGASYS [Suspect]
     Indication: HEPATITIS B
     Dosage: PATIENT REPORTED SHE WILL HAVE BEEN OFF PRODUCT FOR TWO YEARS AS OF THIS JUNE 2007.
     Route: 065
     Dates: end: 20050615

REACTIONS (1)
  - CARDIOMEGALY [None]
